FAERS Safety Report 4343101-9 (Version None)
Quarter: 2004Q2

REPORT INFORMATION
  Report Type: 
  Country: None (occurrence: None)
  Receive Date: 20040421
  Receipt Date: 20030617
  Transmission Date: 20050107
  Serious: Yes (Death, Hospitalization)
  Sender: FDA-Public Use
  Company Number: US-GLAXOSMITHKLINE-A0413828A

PATIENT
  Age: 66 Year
  Sex: Female
  Weight: 79.1 kg

DRUGS (15)
  1. AVANDIA [Suspect]
     Indication: DIABETES MELLITUS NON-INSULIN-DEPENDENT
     Route: 048
  2. ASPIRIN [Concomitant]
     Dosage: 81MG PER DAY
  3. LASIX [Concomitant]
     Dosage: 40MG PER DAY
  4. ZAROXOLYN [Concomitant]
     Dosage: 5MG ALTERNATE DAYS
  5. REGLAN [Concomitant]
     Dosage: 5MG PER DAY
  6. LIPITOR [Concomitant]
     Dosage: 20MG TWICE PER DAY
  7. IMDUR [Concomitant]
     Dosage: 30MG PER DAY
  8. LOPRESSOR [Concomitant]
  9. GLUCOTROL [Concomitant]
     Dosage: 2TAB PER DAY
  10. HUMULIN N [Concomitant]
     Dosage: 30UNIT PER DAY
     Route: 058
  11. HUMULIN N [Concomitant]
     Dosage: 20UNIT PER DAY
     Route: 058
  12. COUMADIN [Concomitant]
     Dosage: 5MG PER DAY
  13. GLUCOTROL XL [Concomitant]
     Dosage: 2TAB PER DAY
  14. ZANTAC [Concomitant]
     Dosage: 300MG PER DAY
  15. REGLAN [Concomitant]
     Dosage: 5MG PER DAY

REACTIONS (17)
  - ACUTE MYOCARDIAL INFARCTION [None]
  - CARDIAC FAILURE CONGESTIVE [None]
  - CARDIOGENIC SHOCK [None]
  - CARDIOMEGALY [None]
  - FLUID OVERLOAD [None]
  - FLUID RETENTION [None]
  - HEART INJURY [None]
  - HEPATIC FAILURE [None]
  - HEPATOCELLULAR DAMAGE [None]
  - ISCHAEMIC CARDIOMYOPATHY [None]
  - LIVER FUNCTION TEST ABNORMAL [None]
  - MITRAL VALVE DISEASE [None]
  - PRODUCTIVE COUGH [None]
  - RESPIRATORY ARREST [None]
  - SCAR [None]
  - TACHYPNOEA [None]
  - TROPONIN I INCREASED [None]
